FAERS Safety Report 16178384 (Version 1)
Quarter: 2019Q2

REPORT INFORMATION
  Report Type: Spontaneous
  Country: CN (occurrence: CN)
  Receive Date: 20190410
  Receipt Date: 20190410
  Transmission Date: 20190711
  Serious: Yes (Hospitalization)
  Sender: FDA-Public Use
  Company Number: CN-ASTRAZENECA-2019SE54190

PATIENT
  Age: 13 Year
  Sex: Male
  Weight: 30 kg

DRUGS (2)
  1. SALBUTAMOL [Concomitant]
     Active Substance: ALBUTEROL
     Indication: BRONCHITIS CHRONIC
     Dates: start: 20190322, end: 20190322
  2. BUDESONIDE. [Suspect]
     Active Substance: BUDESONIDE
     Indication: BRONCHITIS CHRONIC
     Dosage: 1MG BID INHALATION
     Route: 055
     Dates: start: 20190322, end: 20190322

REACTIONS (2)
  - Agitation [Unknown]
  - Tremor [Unknown]

NARRATIVE: CASE EVENT DATE: 20190322
